FAERS Safety Report 9509216 (Version 1)
Quarter: 2013Q3

REPORT INFORMATION
  Report Type: Spontaneous
  Country: US (occurrence: US)
  Receive Date: 20130909
  Receipt Date: 20130909
  Transmission Date: 20140515
  Serious: No
  Sender: FDA-Public Use
  Company Number: US-BRISTOL-MYERS SQUIBB COMPANY-19013663

PATIENT
  Age: 56 Year
  Sex: Male
  Weight: 123.35 kg

DRUGS (1)
  1. ABILIFY [Suspect]
     Indication: DEPRESSION

REACTIONS (4)
  - Anxiety [Unknown]
  - Terminal insomnia [Unknown]
  - Drug administration error [Unknown]
  - Fatigue [Unknown]
